FAERS Safety Report 7052746-7 (Version None)
Quarter: 2010Q4

REPORT INFORMATION
  Report Type: 
  Country: None (occurrence: None)
  Receive Date: 20101012
  Receipt Date: 20100929
  Transmission Date: 20110411
  Serious: Yes (Hospitalization)
  Sender: FDA-Public Use
  Company Number: 2010SP052037

PATIENT
  Age: 66 Year
  Sex: Male
  Weight: 142.7 kg

DRUGS (15)
  1. PEG-INTRON [Suspect]
     Indication: MALIGNANT MELANOMA
     Dosage: 882 MCG;QW;SC
     Route: 058
     Dates: start: 20100810, end: 20100914
  2. HYPERACUTE MELANOMA VACCINE [Suspect]
     Indication: MALIGNANT MELANOMA
     Dosage: QD;ID
     Route: 023
     Dates: start: 20100713, end: 20100921
  3. HYPERACUTE MELANOMA VACCINE [Suspect]
  4. HYPERACUTE MELANOMA VACCINE [Suspect]
  5. LOPRESSOR [Concomitant]
  6. BENADRYL [Concomitant]
  7. ACETAMINOPHEN [Concomitant]
  8. COUMADIN [Concomitant]
  9. LASIX [Concomitant]
  10. EXFORGE [Concomitant]
  11. K-DUR [Concomitant]
  12. FLECAINIDE ACETATE [Concomitant]
  13. ZYRTEC [Concomitant]
  14. FLONASE [Concomitant]
  15. TRICOR [Concomitant]

REACTIONS (5)
  - CARDIAC FAILURE CONGESTIVE [None]
  - CARDIAC FIBRILLATION [None]
  - CONDITION AGGRAVATED [None]
  - DEHYDRATION [None]
  - FAILURE TO THRIVE [None]
